FAERS Safety Report 14648719 (Version 1)
Quarter: 2018Q1

REPORT INFORMATION
  Report Type: Spontaneous
  Country: IT (occurrence: IT)
  Receive Date: 20180316
  Receipt Date: 20180316
  Transmission Date: 20180509
  Serious: Yes (Hospitalization, Other)
  Sender: FDA-Public Use
  Company Number: IT-AUROBINDO-AUR-APL-2018-014649

PATIENT
  Age: 85 Year
  Sex: Female

DRUGS (2)
  1. ALPRAZOLAM. [Suspect]
     Active Substance: ALPRAZOLAM
     Indication: DRUG ABUSE
     Dosage: UNK, TOTAL
     Route: 048
  2. LORAZEPAM. [Suspect]
     Active Substance: LORAZEPAM
     Indication: DRUG ABUSE
     Dosage: 10 DF, ONE TIME DOSE (SINGLE DOSAGE OF 10 DF)
     Route: 048

REACTIONS (4)
  - Sopor [Unknown]
  - Overdose [Unknown]
  - Pneumonia aspiration [Unknown]
  - Drug abuse [Unknown]

NARRATIVE: CASE EVENT DATE: 20170123
